FAERS Safety Report 5787604-9 (Version None)
Quarter: 2008Q2

REPORT INFORMATION
  Report Type: 
  Country: None (occurrence: None)
  Receive Date: 20080625
  Receipt Date: 20080617
  Transmission Date: 20081010
  Serious: Yes (Hospitalization)
  Sender: FDA-Public Use
  Company Number: US-MERCK-0806USA03714

PATIENT
  Age: 55 Year
  Sex: Female

DRUGS (3)
  1. JANUVIA [Suspect]
     Indication: TYPE 2 DIABETES MELLITUS
     Route: 048
     Dates: start: 20080325, end: 20080330
  2. JANUVIA [Suspect]
     Route: 048
     Dates: start: 20080331, end: 20080401
  3. LANTUS [Concomitant]
     Route: 065

REACTIONS (1)
  - HYPOGLYCAEMIA [None]
